FAERS Safety Report 7130412-7 (Version None)
Quarter: 2010Q4

REPORT INFORMATION
  Report Type: 
  Country: None (occurrence: None)
  Receive Date: 20101201
  Receipt Date: 20101126
  Transmission Date: 20110411
  Serious: Yes (Hospitalization)
  Sender: FDA-Public Use
  Company Number: FR-SANOFI-AVENTIS-2010SA071766

PATIENT
  Age: 80 Year
  Sex: Female

DRUGS (2)
  1. RIFADIN [Suspect]
     Indication: SEPTIC ARTHRITIS STAPHYLOCOCCAL
     Route: 048
     Dates: start: 20091004, end: 20091104
  2. AMOXICILLIN [Suspect]
     Indication: SEPTIC ARTHRITIS STAPHYLOCOCCAL
     Route: 048
     Dates: start: 20091004, end: 20091104

REACTIONS (7)
  - CELL DEATH [None]
  - DERMATITIS EXFOLIATIVE [None]
  - DRUG RASH WITH EOSINOPHILIA AND SYSTEMIC SYMPTOMS [None]
  - EOSINOPHILIA [None]
  - OEDEMA MUCOSAL [None]
  - PRURITUS [None]
  - SKIN EXFOLIATION [None]
